FAERS Safety Report 8873090 (Version 1)
Quarter: 2012Q4

REPORT INFORMATION
  Report Type: 
  Country: US (occurrence: US)
  Receive Date: 20121029
  Receipt Date: 20121029
  Transmission Date: 20130627
  Serious: No
  Sender: FDA-Public Use
  Company Number: US-009507513-1210USA012604

PATIENT
  Sex: Male

DRUGS (2)
  1. PEGINTRON [Suspect]
     Indication: HEPATITIS C
     Dosage: 120 mcg weekly
  2. RIBAPAK [Concomitant]

REACTIONS (3)
  - Nausea [Unknown]
  - Diarrhoea [Unknown]
  - Anger [Unknown]
